FAERS Safety Report 9917048 (Version 2)
Quarter: 2014Q1

REPORT INFORMATION
  Report Type: Spontaneous
  Country: IT (occurrence: IT)
  Receive Date: 20140221
  Receipt Date: 20140305
  Transmission Date: 20141002
  Serious: Yes (Hospitalization)
  Sender: FDA-Public Use
  Company Number: IT-ACTAVIS-2014-02703

PATIENT
  Age: 67 Year
  Sex: Female

DRUGS (4)
  1. OXALIPLATIN (UNKNOWN) [Suspect]
     Indication: COLON CANCER METASTATIC
     Dosage: 200 MG, CYCLICAL
     Route: 042
     Dates: start: 20131205, end: 20131205
  2. OXALIPLATIN (UNKNOWN) [Suspect]
     Indication: RECTOSIGMOID CANCER
     Dosage: 200 MG, CYCLICAL
     Route: 042
     Dates: start: 20131203, end: 20140122
  3. XELODA [Suspect]
     Indication: COLON CANCER METASTATIC
     Dosage: 2500 MG, DAILY
     Route: 048
     Dates: start: 20131205, end: 20140108
  4. XELODA [Suspect]
     Indication: RECTOSIGMOID CANCER
     Dosage: 2500 MG, DAILY
     Route: 048
     Dates: start: 20131203, end: 20140122

REACTIONS (3)
  - Anaemia [Recovering/Resolving]
  - Diarrhoea [Recovering/Resolving]
  - Neutropenia [Recovering/Resolving]
